FAERS Safety Report 19738599 (Version 2)
Quarter: 2022Q1

REPORT INFORMATION
  Report Type: Other
  Country: US (occurrence: None)
  Receive Date: 20210823
  Receipt Date: 20220225
  Transmission Date: 20220423
  Serious: Yes (Hospitalization, Other)
  Sender: FDA-Public Use
  Company Number: US-ROCHE-2893717

PATIENT

DRUGS (1)
  1. RITUXIMAB [Suspect]
     Active Substance: RITUXIMAB
     Indication: Myasthenia gravis
     Route: 041

REACTIONS (7)
  - Infection [Unknown]
  - Breast cancer [Unknown]
  - Prostate cancer [Unknown]
  - Rectal cancer [Unknown]
  - Lung neoplasm malignant [Unknown]
  - Squamous cell carcinoma of skin [Unknown]
  - Infusion related reaction [Unknown]
